FAERS Safety Report 10068862 (Version 1)
Quarter: 2014Q2

REPORT INFORMATION
  Report Type: Spontaneous
  Country: US (occurrence: US)
  Receive Date: 20140409
  Receipt Date: 20140409
  Transmission Date: 20141212
  Serious: Yes (Hospitalization, Other)
  Sender: FDA-Public Use
  Company Number: US-PFIZER INC-2014100300

PATIENT
  Age: 80 Year
  Sex: Female
  Weight: 49.89 kg

DRUGS (3)
  1. EFFEXOR [Suspect]
     Dosage: 150 MG, 1X/DAY
     Route: 048
  2. NEXIUM [Concomitant]
     Dosage: UNK
  3. KLONOPIN [Concomitant]
     Dosage: UNK

REACTIONS (2)
  - Pneumonia [Unknown]
  - Upper limb fracture [Unknown]
